FAERS Safety Report 10145541 (Version 2)
Quarter: 2014Q2

REPORT INFORMATION
  Report Type: Spontaneous
  Country: AT (occurrence: AT)
  Receive Date: 20140501
  Receipt Date: 20140530
  Transmission Date: 20141212
  Serious: Yes (Other)
  Sender: FDA-Public Use
  Company Number: AT-JNJFOC-20140419289

PATIENT
  Sex: Female
  Weight: 88 kg

DRUGS (5)
  1. XARELTO [Suspect]
     Indication: THROMBOSIS PROPHYLAXIS
     Route: 048
     Dates: start: 20140326, end: 20140404
  2. XARELTO [Suspect]
     Indication: KNEE ARTHROPLASTY
     Route: 048
     Dates: start: 20140326, end: 20140404
  3. SELOKEN PLUS [Concomitant]
     Indication: HYPERTENSION
     Route: 065
  4. CANDESARTAN W/HYDROCHLOROTHIAZIDE [Concomitant]
     Indication: HYPERTENSION
     Route: 065
  5. PANTOLOC [Concomitant]
     Indication: ABDOMINAL PAIN UPPER
     Route: 065

REACTIONS (1)
  - Deep vein thrombosis [Not Recovered/Not Resolved]
